FAERS Safety Report 11196953 (Version 1)
Quarter: 2015Q2

REPORT INFORMATION
  Report Type: Spontaneous
  Country: GB (occurrence: GB)
  Receive Date: 20150617
  Receipt Date: 20150617
  Transmission Date: 20150821
  Serious: Yes (Other)
  Sender: FDA-Public Use
  Company Number: GB-JNJFOC-20150611697

PATIENT
  Sex: Male

DRUGS (1)
  1. SIMPONI [Suspect]
     Active Substance: GOLIMUMAB
     Indication: RHEUMATOID ARTHRITIS
     Dosage: 50MG/5ML
     Route: 058
     Dates: start: 20130308

REACTIONS (2)
  - Schwannoma [Unknown]
  - Blindness [Unknown]

NARRATIVE: CASE EVENT DATE: 2015
